FAERS Safety Report 4679127-5 (Version None)
Quarter: 2005Q2

REPORT INFORMATION
  Report Type: 
  Country: None (occurrence: None)
  Receive Date: 20050527
  Receipt Date: 20050310
  Transmission Date: 20051028
  Serious: No
  Sender: FDA-Public Use
  Company Number: PHEH2005US01732

PATIENT
  Sex: Female

DRUGS (2)
  1. ZELNORM [Suspect]
  2. NEXIUM [Suspect]

REACTIONS (3)
  - DRUG INEFFECTIVE [None]
  - DRUG INTERACTION [None]
  - GLOSSITIS [None]
